FAERS Safety Report 4590004-0 (Version None)
Quarter: 2005Q1

REPORT INFORMATION
  Report Type: 
  Country: None (occurrence: None)
  Receive Date: 20050218
  Receipt Date: 20050218
  Transmission Date: 20050727
  Serious: Yes (Death)
  Sender: FDA-Public Use
  Company Number: None

PATIENT
  Sex: Male
  Weight: 83.0083 kg

DRUGS (3)
  1. IRINOTECAN  40 MG   PHARMACIA CORPORATION [Suspect]
     Indication: GLIOBLASTOMA MULTIFORME
     Dosage: 400 MG/M^2 DAYS 1,8,22,29  INTRAVENOUS
     Route: 042
     Dates: start: 20050110, end: 20050207
  2. RADIATION THERAPY [Suspect]
     Indication: GLIOBLASTOMA MULTIFORME
     Dosage: 200 CGY  5 TIMES A WEEK  OTHER
     Dates: start: 20050110, end: 20050208
  3. IRINOTECAN HCL [Suspect]

REACTIONS (4)
  - CARDIAC ARREST [None]
  - CARDIO-RESPIRATORY ARREST [None]
  - COMA [None]
  - ELECTROMECHANICAL DISSOCIATION [None]
